FAERS Safety Report 8548675-X (Version None)
Quarter: 2012Q3

REPORT INFORMATION
  Report Type: 
  Country: None (occurrence: None)
  Receive Date: 20120720
  Receipt Date: 20120720
  Transmission Date: 20120928
  Serious: Yes (Life-Threatening, Hospitalization)
  Sender: FDA-Public Use
  Company Number: None

PATIENT
  Age: 12 Year
  Sex: Female
  Weight: 40 kg

DRUGS (1)
  1. BACTRIM [Suspect]

REACTIONS (9)
  - SUNBURN [None]
  - TOXIC EPIDERMAL NECROLYSIS [None]
  - PYREXIA [None]
  - HYPOTENSION [None]
  - ODYNOPHAGIA [None]
  - HEADACHE [None]
  - SPLENOMEGALY [None]
  - HYPOPHAGIA [None]
  - HAEMOGLOBIN DECREASED [None]
